FAERS Safety Report 4404263-8 (Version None)
Quarter: 2004Q3

REPORT INFORMATION
  Report Type: 
  Country: None (occurrence: None)
  Receive Date: 20040719
  Receipt Date: 20040702
  Transmission Date: 20050211
  Serious: Yes (Life-Threatening)
  Sender: FDA-Public Use
  Company Number: 2004-0007222

PATIENT
  Age: 5 Year
  Sex: Male
  Weight: 20 kg

DRUGS (5)
  1. DAUNOXOME [Suspect]
     Indication: ACUTE LYMPHOCYTIC LEUKAEMIA
     Dosage: 100 MG/M2, 1 IN 7 D, INTRAVENOUS
     Route: 042
     Dates: start: 20040619, end: 20040626
  2. VINCRISTINE [Concomitant]
  3. MABTHERA (RITUXIMAB) [Concomitant]
  4. VANCOMYCIN [Concomitant]
  5. TAZOCILLINE (PIP/TAZO) [Concomitant]

REACTIONS (3)
  - BLOOD BILIRUBIN INCREASED [None]
  - BLOOD TRIGLYCERIDES INCREASED [None]
  - PANCREATITIS [None]
